FAERS Safety Report 25077560 (Version 4)
Quarter: 2025Q3

REPORT INFORMATION
  Report Type: Report from Study
  Country: US (occurrence: US)
  Receive Date: 20250314
  Receipt Date: 20250828
  Transmission Date: 20251020
  Serious: Yes (Other)
  Sender: TAKEDA
  Company Number: US-TAKEDA-2025TUS022493

PATIENT
  Sex: Female

DRUGS (27)
  1. IXAZOMIB [Suspect]
     Active Substance: IXAZOMIB
     Indication: Plasma cell myeloma
  2. IXAZOMIB [Suspect]
     Active Substance: IXAZOMIB
     Dosage: 5 MILLIGRAM, QD
  3. IXAZOMIB [Suspect]
     Active Substance: IXAZOMIB
  4. IXAZOMIB [Suspect]
     Active Substance: IXAZOMIB
     Dosage: 3 MILLIGRAM, 1/WEEK
  5. ACYCLOVIR [Concomitant]
     Active Substance: ACYCLOVIR
  6. ALLOPURINOL [Concomitant]
     Active Substance: ALLOPURINOL
  7. ELIQUIS [Concomitant]
     Active Substance: APIXABAN
  8. AMLODIPINE BESYLATE [Concomitant]
     Active Substance: AMLODIPINE BESYLATE
  9. CREON [Concomitant]
     Active Substance: PANCRELIPASE AMYLASE\PANCRELIPASE LIPASE\PANCRELIPASE PROTEASE
  10. PRILOSEC OTC [Concomitant]
     Active Substance: OMEPRAZOLE MAGNESIUM
  11. AMOXICILLIN [Concomitant]
     Active Substance: AMOXICILLIN
  12. CLARITIN [Concomitant]
     Active Substance: LORATADINE
  13. OXYCODONE AND ACETAMINOPHEN [Concomitant]
     Active Substance: ACETAMINOPHEN\OXYCODONE HYDROCHLORIDE
  14. ONDANSETRON [Concomitant]
     Active Substance: ONDANSETRON
  15. FLUTICASONE PROPIONATE [Concomitant]
     Active Substance: FLUTICASONE PROPIONATE
  16. RESTASIS [Concomitant]
     Active Substance: CYCLOSPORINE
  17. HYOSCYAMINE SULFATE [Concomitant]
     Active Substance: HYOSCYAMINE SULFATE
  18. NALOXONE HCL [Concomitant]
     Active Substance: NALOXONE HYDROCHLORIDE
  19. CAPSAICIN [Concomitant]
     Active Substance: CAPSAICIN
  20. LIDOCAINE [Concomitant]
     Active Substance: LIDOCAINE
  21. XALATAN [Concomitant]
     Active Substance: LATANOPROST
  22. REVLIMID [Concomitant]
     Active Substance: LENALIDOMIDE
  23. SULFAMETHOXAZOLE\TRIMETHOPRIM [Concomitant]
     Active Substance: SULFAMETHOXAZOLE\TRIMETHOPRIM
  24. VANICREAM [Concomitant]
     Active Substance: TITANIUM DIOXIDE\ZINC OXIDE
  25. MELATONIN [Concomitant]
     Active Substance: MELATONIN
  26. VITAMIN D2 [Concomitant]
     Active Substance: ERGOCALCIFEROL
  27. BENZONATATE [Concomitant]
     Active Substance: BENZONATATE

REACTIONS (13)
  - Immunoglobulins decreased [Not Recovered/Not Resolved]
  - Platelet count decreased [Not Recovered/Not Resolved]
  - Muscle spasms [Unknown]
  - Hypermetabolism [Unknown]
  - Neuropathy peripheral [Unknown]
  - Paraesthesia [Not Recovered/Not Resolved]
  - Dry skin [Not Recovered/Not Resolved]
  - Pain in extremity [Not Recovered/Not Resolved]
  - Blood potassium decreased [Not Recovered/Not Resolved]
  - Fall [Recovered/Resolved]
  - Cold urticaria [Unknown]
  - Taste disorder [Unknown]
  - Headache [Unknown]
